FAERS Safety Report 9306700 (Version 1)
Quarter: 2013Q2

REPORT INFORMATION
  Report Type: Spontaneous
  Country: US (occurrence: US)
  Receive Date: 20130523
  Receipt Date: 20130523
  Transmission Date: 20140414
  Serious: Yes (Hospitalization)
  Sender: FDA-Public Use
  Company Number: US-PERRIGO-13US005247

PATIENT
  Age: 36 Year
  Sex: Male

DRUGS (3)
  1. BISMUTH SUBSALICYLATE 17.467 MG/ML 302 [Suspect]
     Indication: PRODUCT USED FOR UNKNOWN INDICATION
     Dosage: 565 MG, SINGLE
     Route: 048
     Dates: start: 20130417, end: 20130417
  2. PEPTO-BISMOL [Suspect]
     Indication: PRODUCT USED FOR UNKNOWN INDICATION
     Dosage: 524 MG, SINGLE
     Route: 048
     Dates: start: 20130415, end: 20130415
  3. PEPTO-BISMOL [Suspect]
     Dosage: 524 MG, SINGLE
     Route: 048
     Dates: start: 20130416, end: 20130416

REACTIONS (4)
  - Appendicitis [Unknown]
  - Vomiting [Unknown]
  - Abdominal pain [Unknown]
  - Malaise [Unknown]
